FAERS Safety Report 20008299 (Version 3)
Quarter: 2022Q2

REPORT INFORMATION
  Report Type: Spontaneous
  Country: CA (occurrence: None)
  Receive Date: 20211028
  Receipt Date: 20220603
  Transmission Date: 20220720
  Serious: Yes (Other)
  Sender: FDA-Public Use
  Company Number: 2021A781232

PATIENT
  Age: 62 Year
  Sex: Female

DRUGS (3)
  1. DURVALUMAB [Suspect]
     Active Substance: DURVALUMAB
     Indication: Squamous cell carcinoma
     Dosage: 1500 MG, MONTHLY
     Route: 065
     Dates: start: 201705, end: 201909
  2. CELECOXIB [Suspect]
     Active Substance: CELECOXIB
     Indication: Product used for unknown indication
     Route: 065
     Dates: start: 201909
  3. PREDNISONE [Concomitant]
     Active Substance: PREDNISONE
     Indication: Squamous cell carcinoma
     Dosage: FREQ:24 H
     Route: 065

REACTIONS (2)
  - Skin toxicity [Unknown]
  - Pemphigoid [Unknown]

NARRATIVE: CASE EVENT DATE: 20190901
